FAERS Safety Report 6118245-1 (Version None)
Quarter: 2009Q1

REPORT INFORMATION
  Report Type: 
  Country: None (occurrence: None)
  Receive Date: 20090314
  Receipt Date: 20090210
  Transmission Date: 20090719
  Serious: No
  Sender: FDA-Public Use
  Company Number: US-ABBOTT-09P-163-0503061-00

PATIENT
  Sex: Female
  Weight: 59.02 kg

DRUGS (6)
  1. HUMIRA [Suspect]
     Indication: CROHN'S DISEASE
     Dates: start: 20070801, end: 20081001
  2. HUMIRA [Suspect]
     Route: 058
     Dates: start: 20081001
  3. PREDNISONE [Concomitant]
     Indication: CROHN'S DISEASE
     Route: 048
  4. IMURAN [Concomitant]
     Indication: CROHN'S DISEASE
     Route: 048
  5. LIALDA [Concomitant]
     Indication: CROHN'S DISEASE
     Dosage: UNKNOWN
     Route: 048
  6. FLAGYL [Concomitant]
     Indication: CROHN'S DISEASE
     Route: 048

REACTIONS (2)
  - CROHN'S DISEASE [None]
  - FEMALE GENITAL TRACT FISTULA [None]
